FAERS Safety Report 10560761 (Version 1)
Quarter: 2014Q4

REPORT INFORMATION
  Report Type: Spontaneous
  Country: US (occurrence: US)
  Receive Date: 20141103
  Receipt Date: 20141103
  Transmission Date: 20150529
  Serious: Yes (Death, Other)
  Sender: FDA-Public Use
  Company Number: US-GLAXOSMITHKLINE-US2014GSK014608

PATIENT
  Age: 62 Year
  Sex: Male

DRUGS (1)
  1. PROMACTA [Suspect]
     Active Substance: ELTROMBOPAG OLAMINE
     Indication: OSTEOARTHRITIS
     Dosage: 25 MG, QD
     Dates: start: 20140324

REACTIONS (1)
  - Death [Fatal]

NARRATIVE: CASE EVENT DATE: 20141023
